FAERS Safety Report 23924403 (Version 2)
Quarter: 2025Q1

REPORT INFORMATION
  Report Type: Report from Study
  Country: CA (occurrence: CA)
  Receive Date: 20240531
  Receipt Date: 20250116
  Transmission Date: 20250409
  Serious: Yes (Other)
  Sender: TAKEDA
  Company Number: CA-TAKEDA-2024TUS041879

PATIENT
  Sex: Male

DRUGS (9)
  1. VEDOLIZUMAB [Suspect]
     Active Substance: VEDOLIZUMAB
     Indication: Colitis ulcerative
  2. VEDOLIZUMAB [Suspect]
     Active Substance: VEDOLIZUMAB
  3. VEDOLIZUMAB [Suspect]
     Active Substance: VEDOLIZUMAB
     Dosage: 300 MILLIGRAM, Q4WEEKS
     Dates: start: 20240621
  4. Cortiment [Concomitant]
  5. MESALAMINE [Concomitant]
     Active Substance: MESALAMINE
  6. HYDROCHLOROTHIAZIDE [Concomitant]
     Active Substance: HYDROCHLOROTHIAZIDE
  7. VALSARTAN [Concomitant]
     Active Substance: VALSARTAN
  8. ESOMEPRAZOLE [Concomitant]
     Active Substance: ESOMEPRAZOLE
  9. CIALIS [Concomitant]
     Active Substance: TADALAFIL

REACTIONS (5)
  - Oedema peripheral [Recovered/Resolved]
  - Peripheral swelling [Recovering/Resolving]
  - Muscle strain [Recovering/Resolving]
  - Musculoskeletal chest pain [Recovered/Resolved]
  - Pruritus [Recovering/Resolving]
